FAERS Safety Report 16868345 (Version 2)
Quarter: 2019Q4

REPORT INFORMATION
  Report Type: Spontaneous
  Country: US (occurrence: US)
  Receive Date: 20190930
  Receipt Date: 20191009
  Transmission Date: 20200122
  Serious: No
  Sender: FDA-Public Use
  Company Number: US-PFIZER INC-2019415669

PATIENT
  Sex: Male
  Weight: 131.54 kg

DRUGS (1)
  1. SILDENAFIL CITRATE. [Suspect]
     Active Substance: SILDENAFIL CITRATE
     Dosage: 100 MG, 2X/WEEK  [ONE TIME WHEN HE WAS USING IT, MAYBE TWICE A WEEK]
     Route: 048

REACTIONS (1)
  - Therapeutic product effect incomplete [Unknown]
